FAERS Safety Report 5542720-1 (Version None)
Quarter: 2007Q4

REPORT INFORMATION
  Report Type: 
  Country: None (occurrence: None)
  Receive Date: 20071123
  Receipt Date: 20070606
  Transmission Date: 20080405
  Serious: Yes (Other)
  Sender: FDA-Public Use
  Company Number: US-JNJFOC-20070306719

PATIENT
  Age: 37 Year
  Sex: Female
  Weight: 78.0187 kg

DRUGS (7)
  1. LEVAQUIN [Suspect]
     Indication: BRONCHITIS
     Dosage: 500 MG, 1 IN 1 DAY, ORAL
     Route: 048
     Dates: start: 20070305, end: 20070315
  2. BENICAR [Concomitant]
  3. VYTORIN [Concomitant]
  4. SINGULAIR [Concomitant]
  5. CYMBALTA [Concomitant]
  6. BUSPAR [Concomitant]
  7. ACIPHEX [Concomitant]

REACTIONS (2)
  - PLANTAR FASCIITIS [None]
  - TENDON PAIN [None]
